FAERS Safety Report 25083396 (Version 1)
Quarter: 2025Q1

REPORT INFORMATION
  Report Type: Spontaneous
  Country: GB (occurrence: GB)
  Receive Date: 20250317
  Receipt Date: 20250317
  Transmission Date: 20250409
  Serious: Yes (Other)
  Sender: AUROBINDO
  Company Number: GB-MHRA-MIDB- 36c002d0-769f-4778-b8a4-6b3a8c546b6b

PATIENT
  Age: 66 Year

DRUGS (1)
  1. GABAPENTIN [Suspect]
     Active Substance: GABAPENTIN
     Indication: Product used for unknown indication
     Route: 065

REACTIONS (5)
  - Oesophageal obstruction [Unknown]
  - Dysphagia [Unknown]
  - Oesophageal disorder [Unknown]
  - Regurgitation [Unknown]
  - Pain [Unknown]
